FAERS Safety Report 5442375-0 (Version None)
Quarter: 2007Q3

REPORT INFORMATION
  Report Type: 
  Country: None (occurrence: None)
  Receive Date: 20070829
  Receipt Date: 20070817
  Transmission Date: 20080115
  Serious: Yes (Hospitalization)
  Sender: FDA-Public Use
  Company Number: 2007BI017395

PATIENT
  Age: 61 Year
  Sex: Female
  Weight: 90.7194 kg

DRUGS (3)
  1. AVONEX [Suspect]
     Indication: MULTIPLE SCLEROSIS
     Dosage: 15 UG;QW;IM
     Route: 030
     Dates: start: 20030101
  2. CALCIUM CARBONATE [Concomitant]
  3. PROPRANOLOL [Concomitant]

REACTIONS (7)
  - ANAEMIA [None]
  - BEDRIDDEN [None]
  - DEPRESSION [None]
  - DYSPNOEA [None]
  - HOT FLUSH [None]
  - MUSCLE SPASMS [None]
  - PRURITUS [None]
